FAERS Safety Report 21908937 (Version 2)
Quarter: 2023Q1

REPORT INFORMATION
  Report Type: Report from Study
  Country: US (occurrence: US)
  Receive Date: 20230125
  Receipt Date: 20230215
  Transmission Date: 20230417
  Serious: Yes (Hospitalization)
  Sender: FDA-Public Use
  Company Number: US-ABBVIE-4282719

PATIENT
  Age: 38 Year
  Sex: Male
  Weight: 72.574 kg

DRUGS (1)
  1. CREON [Suspect]
     Active Substance: PANCRELIPASE AMYLASE\PANCRELIPASE LIPASE\PANCRELIPASE PROTEASE
     Indication: Pancreatitis
     Dosage: TIME INTERVAL: 0.33333333 DAYS: OC
     Route: 048
     Dates: start: 20200124

REACTIONS (4)
  - Fall [Recovering/Resolving]
  - Ligament rupture [Recovering/Resolving]
  - Scapula fracture [Recovering/Resolving]
  - Clavicle fracture [Recovering/Resolving]

NARRATIVE: CASE EVENT DATE: 20221101
